FAERS Safety Report 21929559 (Version 2)
Quarter: 2025Q1

REPORT INFORMATION
  Report Type: Spontaneous
  Country: US (occurrence: US)
  Receive Date: 20230131
  Receipt Date: 20250227
  Transmission Date: 20250409
  Serious: No
  Sender: UCB
  Company Number: US-UCBSA-2022061828

PATIENT
  Sex: Male

DRUGS (1)
  1. KEPPRA [Suspect]
     Active Substance: LEVETIRACETAM
     Indication: Product used for unknown indication
     Dosage: 500 MICROGRAM, 3X/DAY (TID)
     Dates: start: 20201019

REACTIONS (2)
  - Product administration interrupted [Unknown]
  - Wrong technique in product usage process [Unknown]
